FAERS Safety Report 4415275-2 (Version None)
Quarter: 2004Q3

REPORT INFORMATION
  Report Type: 
  Country: None (occurrence: None)
  Receive Date: 20040729
  Receipt Date: 20040716
  Transmission Date: 20050211
  Serious: No
  Sender: FDA-Public Use
  Company Number: FABR-10682

PATIENT
  Age: 61 Year
  Sex: Female
  Weight: 70 kg

DRUGS (1)
  1. FABRAZYME [Suspect]
     Indication: FABRY'S DISEASE
     Dosage: 70 MG Q2WKS IV
     Route: 042
     Dates: start: 20031107

REACTIONS (3)
  - CHEST DISCOMFORT [None]
  - FEELING ABNORMAL [None]
  - TACHYARRHYTHMIA [None]
